FAERS Safety Report 21198540 (Version 3)
Quarter: 2022Q3

REPORT INFORMATION
  Report Type: Report from Study
  Country: BR (occurrence: BR)
  Receive Date: 20220811
  Receipt Date: 20220821
  Transmission Date: 20221026
  Serious: Yes (Hospitalization, Other)
  Sender: FDA-Public Use
  Company Number: BR-JNJFOC-20220816235

PATIENT
  Age: 53 Year
  Sex: Female
  Weight: 66.4 kg

DRUGS (2)
  1. SIMPONI [Suspect]
     Active Substance: GOLIMUMAB
     Indication: Ankylosing spondylitis
     Dosage: 50.00 MG / 0.50 ML
     Route: 058
  2. SIMPONI [Suspect]
     Active Substance: GOLIMUMAB

REACTIONS (5)
  - Urinary tract infection [Unknown]
  - COVID-19 [Unknown]
  - Renal disorder [Unknown]
  - Arthralgia [Unknown]
  - Nosocomial infection [Unknown]

NARRATIVE: CASE EVENT DATE: 20210701
